FAERS Safety Report 25715685 (Version 1)
Quarter: 2025Q3

REPORT INFORMATION
  Report Type: Other
  Country: US (occurrence: US)
  Receive Date: 20250822
  Receipt Date: 20250822
  Transmission Date: 20251021
  Serious: Yes (Death, Hospitalization)
  Sender: ANI
  Company Number: US-ANIPHARMA-024188

PATIENT
  Age: 63 Year
  Sex: Female

DRUGS (8)
  1. SULFAMETHOXAZOLE\TRIMETHOPRIM [Suspect]
     Active Substance: SULFAMETHOXAZOLE\TRIMETHOPRIM
     Indication: Pneumocystis jirovecii pneumonia
  2. PIRTOBRUTINIB [Concomitant]
     Active Substance: PIRTOBRUTINIB
     Indication: Mantle cell lymphoma recurrent
  3. PREDNISONE [Concomitant]
     Active Substance: PREDNISONE
     Indication: COVID-19 pneumonia
  4. AMPHOTERICIN B [Concomitant]
     Active Substance: AMPHOTERICIN B
     Indication: Rhinocerebral mucormycosis
  5. ERTAPENEM [Concomitant]
     Active Substance: ERTAPENEM
     Indication: Pathogen resistance
  6. REMDESIVIR [Concomitant]
     Active Substance: REMDESIVIR
     Indication: COVID-19
  7. POSACONAZOLE [Concomitant]
     Active Substance: POSACONAZOLE
     Indication: Rhinocerebral mucormycosis
  8. ERTAPENEM [Concomitant]
     Active Substance: ERTAPENEM
     Indication: Klebsiella infection

REACTIONS (1)
  - Drug ineffective [Fatal]
